FAERS Safety Report 8785526 (Version 2)
Quarter: 2012Q4

REPORT INFORMATION
  Report Type: 
  Country: US (occurrence: US)
  Receive Date: 20120914
  Receipt Date: 20121023
  Transmission Date: 20130627
  Serious: No
  Sender: FDA-Public Use
  Company Number: US-PFIZER INC-2012225959

PATIENT
  Age: 68 Year
  Sex: Female
  Weight: 79 kg

DRUGS (4)
  1. LYRICA [Suspect]
     Indication: TRIGEMINAL NEURALGIA
     Dosage: 75 mg, 2x/day
     Route: 048
     Dates: start: 20120805, end: 201208
  2. LYRICA [Suspect]
     Dosage: 75 mg, 3x/day
     Route: 048
     Dates: start: 201208, end: 201208
  3. LYRICA [Suspect]
     Dosage: 50 mg, 2x/day
     Route: 048
     Dates: start: 201208
  4. BABY ASPIRIN [Concomitant]
     Indication: BLOOD DISORDER
     Dosage: UNK, 2x/day

REACTIONS (18)
  - Back pain [Not Recovered/Not Resolved]
  - Discomfort [Not Recovered/Not Resolved]
  - Anorectal discomfort [Not Recovered/Not Resolved]
  - Pain in extremity [Not Recovered/Not Resolved]
  - Pain in extremity [Not Recovered/Not Resolved]
  - Pain [Unknown]
  - Balance disorder [Unknown]
  - Trigeminal neuralgia [Unknown]
  - Thinking abnormal [Not Recovered/Not Resolved]
  - Hearing impaired [Not Recovered/Not Resolved]
  - Withdrawal syndrome [Not Recovered/Not Resolved]
  - Coordination abnormal [Not Recovered/Not Resolved]
  - Bradyphrenia [Not Recovered/Not Resolved]
  - Feeling abnormal [Not Recovered/Not Resolved]
  - Attention deficit/hyperactivity disorder [Not Recovered/Not Resolved]
  - Arthralgia [Unknown]
  - Headache [Unknown]
  - Balance disorder [Unknown]
